FAERS Safety Report 10495301 (Version 2)
Quarter: 2015Q2

REPORT INFORMATION
  Report Type: Report from Study
  Country: US (occurrence: US)
  Receive Date: 20141003
  Receipt Date: 20150420
  Transmission Date: 20150821
  Serious: Yes (Other)
  Sender: FDA-Public Use
  Company Number: US-SA-2014SA133802

PATIENT
  Age: 45 Year
  Sex: Male
  Weight: 136 kg

DRUGS (4)
  1. AUBAGIO [Suspect]
     Active Substance: TERIFLUNOMIDE
     Indication: MULTIPLE SCLEROSIS
     Route: 048
     Dates: start: 20130326, end: 20140925
  2. CEPHALEXIN. [Concomitant]
     Active Substance: CEPHALEXIN
     Indication: SKIN IRRITATION
     Dates: start: 20130607, end: 20130613
  3. REBIF [Concomitant]
     Active Substance: INTERFERON BETA-1A
     Route: 065
     Dates: start: 20001015, end: 20130320
  4. GABAPENTIN. [Concomitant]
     Active Substance: GABAPENTIN

REACTIONS (7)
  - Fall [Unknown]
  - Hypoaesthesia [Unknown]
  - Drug ineffective [Unknown]
  - Muscular weakness [Unknown]
  - Abasia [Unknown]
  - Gait disturbance [Unknown]
  - Multiple sclerosis relapse [Not Recovered/Not Resolved]

NARRATIVE: CASE EVENT DATE: 20131019
